FAERS Safety Report 10028737 (Version 2)
Quarter: 2014Q1

REPORT INFORMATION
  Report Type: Report from Study
  Country: UG (occurrence: UG)
  Receive Date: 20140321
  Receipt Date: 20140321
  Transmission Date: 20141002
  Serious: Yes (Death, Life-Threatening)
  Sender: FDA-Public Use
  Company Number: UG-ABBVIE-12P-165-0984286-00

PATIENT
  Age: 14 Year
  Sex: Female

DRUGS (3)
  1. ALUVIA [Suspect]
     Indication: HIV INFECTION
     Route: 048
     Dates: start: 20111004
  2. TENOFOVIR/LAMIVUDINE [Concomitant]
     Indication: HIV INFECTION
     Dates: start: 20111004
  3. SEPTRIN [Concomitant]
     Indication: PRODUCT USED FOR UNKNOWN INDICATION
     Dates: start: 20111004

REACTIONS (3)
  - Cardiac failure congestive [Fatal]
  - Chest pain [Fatal]
  - Dyspnoea [Fatal]
